FAERS Safety Report 17989864 (Version 2)
Quarter: 2020Q3

REPORT INFORMATION
  Report Type: Report from Study
  Country: IL (occurrence: IL)
  Receive Date: 20200707
  Receipt Date: 20200715
  Transmission Date: 20201103
  Serious: Yes (Hospitalization, Other)
  Sender: FDA-Public Use
  Company Number: IL-GLAXOSMITHKLINE-IL2020EME117832

PATIENT
  Age: 56 Year
  Sex: Female

DRUGS (1)
  1. MEPOLIZUMAB [Suspect]
     Active Substance: MEPOLIZUMAB
     Indication: ASTHMA
     Dosage: 100 MG, Z
     Route: 042

REACTIONS (6)
  - Dyspnoea [Unknown]
  - Productive cough [Unknown]
  - Coronavirus test negative [Unknown]
  - Blood glucose increased [Unknown]
  - Coronavirus test positive [Unknown]
  - Bone pain [Unknown]

NARRATIVE: CASE EVENT DATE: 20200531
